FAERS Safety Report 9694050 (Version 2)
Quarter: 2016Q1

REPORT INFORMATION
  Report Type: Spontaneous
  Country: GB (occurrence: GB)
  Receive Date: 20131118
  Receipt Date: 20160205
  Transmission Date: 20160526
  Serious: Yes (Other)
  Sender: FDA-Public Use
  Company Number: GB-BRISTOL-MYERS SQUIBB COMPANY-19814417

PATIENT
  Age: 1 Day

DRUGS (1)
  1. METFORMIN HYDROCHLORIDE. [Suspect]
     Active Substance: METFORMIN HYDROCHLORIDE
     Indication: PRODUCT USED FOR UNKNOWN INDICATION
     Dosage: UNK
     Route: 064

REACTIONS (6)
  - Foetal exposure during pregnancy [Recovered/Resolved]
  - Metabolic acidosis [Unknown]
  - Foetal hypokinesia [Unknown]
  - Hypertrophic cardiomyopathy [Recovered/Resolved]
  - Apgar score low [Unknown]
  - Foetal distress syndrome [Unknown]
